FAERS Safety Report 22115772 (Version 1)
Quarter: 2023Q1

REPORT INFORMATION
  Report Type: Other
  Country: None (occurrence: ES)
  Receive Date: 20230320
  Receipt Date: 20230320
  Transmission Date: 20230417
  Serious: Yes (Hospitalization, Other)
  Sender: FDA-Public Use
  Company Number: ES-Spectra Medical Devices, LLC-2139278

PATIENT
  Age: 60 Year
  Sex: Female

DRUGS (5)
  1. SODIUM CHLORIDE [Suspect]
     Active Substance: SODIUM CHLORIDE
     Indication: Product used for unknown indication
     Route: 065
  2. ALBENDAZOLE [Concomitant]
     Active Substance: ALBENDAZOLE
     Route: 065
  3. EPINEPHRINE [Concomitant]
     Active Substance: EPINEPHRINE
     Route: 065
  4. METHYLPREDNISOLONE [Concomitant]
     Active Substance: METHYLPREDNISOLONE
     Route: 065
  5. DEXCHLORPHENIRAMINE [Concomitant]
     Active Substance: DEXCHLORPHENIRAMINE
     Route: 065

REACTIONS (4)
  - Hypernatraemia [Recovered/Resolved]
  - Shock haemorrhagic [Recovered/Resolved]
  - Acute hepatic failure [Recovering/Resolving]
  - Acute kidney injury [Recovered/Resolved]
